FAERS Safety Report 6581544-3 (Version None)
Quarter: 2010Q1

REPORT INFORMATION
  Report Type: 
  Country: None (occurrence: None)
  Receive Date: 20100215
  Receipt Date: 20090428
  Transmission Date: 20100710
  Serious: Yes (Death)
  Sender: FDA-Public Use
  Company Number: GB-CUBIST-2010S1000082

PATIENT

DRUGS (2)
  1. CUBICIN [Suspect]
     Indication: BACTERAEMIA
  2. CLINDAMYCIN [Concomitant]
     Indication: BACTERAEMIA

REACTIONS (1)
  - DEATH [None]
